FAERS Safety Report 5234194-5 (Version None)
Quarter: 2007Q1

REPORT INFORMATION
  Report Type: 
  Country: None (occurrence: None)
  Receive Date: 20070209
  Receipt Date: 20070131
  Transmission Date: 20070707
  Serious: Yes (Hospitalization)
  Sender: FDA-Public Use
  Company Number: TR-JNJFOC-20070200711

PATIENT
  Age: 54 Year
  Sex: Female
  Weight: 68 kg

DRUGS (3)
  1. RISPERDAL CONSTA [Suspect]
     Indication: SCHIZOAFFECTIVE DISORDER
     Route: 030
  2. VALPROATE SODIUM [Concomitant]
     Indication: AFFECTIVE DISORDER
     Route: 065
  3. LEVOTHYROXINE SODIUM [Concomitant]
     Indication: HYPOTHYROIDISM
     Route: 065

REACTIONS (2)
  - DYSPHORIA [None]
  - PARKINSONISM [None]
